FAERS Safety Report 8248694-7 (Version None)
Quarter: 2012Q1

REPORT INFORMATION
  Report Type: 
  Country: None (occurrence: None)
  Receive Date: 20120331
  Receipt Date: 20120322
  Transmission Date: 20120608
  Serious: Yes (Hospitalization, Other)
  Sender: FDA-Public Use
  Company Number: PHHY2010AU78340

PATIENT
  Sex: Male

DRUGS (5)
  1. SEROQUEL [Concomitant]
     Dosage: UNK UKN, UNK
     Route: 048
     Dates: start: 20110924
  2. CLOZARIL [Suspect]
     Dosage: 350 MG/DAY
     Dates: end: 20101230
  3. LORAZEPAM [Concomitant]
  4. CLOZARIL [Suspect]
     Dosage: 550 MG
     Dates: start: 20050826
  5. CLOZARIL [Suspect]

REACTIONS (10)
  - REBOUND EFFECT [None]
  - PSYCHOTIC DISORDER [None]
  - ANTIPSYCHOTIC DRUG LEVEL INCREASED [None]
  - EOSINOPENIA [None]
  - HALLUCINATION, AUDITORY [None]
  - SCHIZOPHRENIA [None]
  - CHOLINERGIC SYNDROME [None]
  - ANXIETY [None]
  - PALPITATIONS [None]
  - PARANOIA [None]
